FAERS Safety Report 6640949-2 (Version None)
Quarter: 2010Q1

REPORT INFORMATION
  Report Type: 
  Country: None (occurrence: None)
  Receive Date: 20100318
  Receipt Date: 20100312
  Transmission Date: 20100710
  Serious: Yes (Death)
  Sender: FDA-Public Use
  Company Number: DE-ROCHE-691018

PATIENT
  Sex: Female
  Weight: 69 kg

DRUGS (7)
  1. CAPECITABINE [Suspect]
     Route: 065
  2. BEVACIZUMAB [Suspect]
     Route: 065
  3. BAYMYCARD [Concomitant]
  4. CANDESARTAN CILEXETIL [Concomitant]
  5. SIMVASTATIN [Concomitant]
  6. SOTAHEXAL [Concomitant]
  7. RASILEZ [Concomitant]

REACTIONS (1)
  - PULMONARY EMBOLISM [None]
